FAERS Safety Report 21520611 (Version 1)
Quarter: 2022Q4

REPORT INFORMATION
  Report Type: Report from Study
  Country: KR (occurrence: KR)
  Receive Date: 20221028
  Receipt Date: 20221028
  Transmission Date: 20230113
  Serious: Yes (Death, Other)
  Sender: FDA-Public Use
  Company Number: KR-GLAXOSMITHKLINE-KR2022GSK155730

PATIENT

DRUGS (5)
  1. FLUTICASONE FUROATE\UMECLIDINIUM BROMIDE\VILANTEROL TRIFENATATE [Suspect]
     Active Substance: FLUTICASONE FUROATE\UMECLIDINIUM BROMIDE\VILANTEROL TRIFENATATE
     Indication: Chronic obstructive pulmonary disease
     Dosage: UNK, QD
     Route: 055
     Dates: start: 20220425
  2. PRANLUKAST [Concomitant]
     Active Substance: PRANLUKAST
     Indication: Chronic obstructive pulmonary disease
     Dosage: 1 DF, BID
     Route: 048
     Dates: start: 20210428
  3. ERDOSTEINE [Concomitant]
     Active Substance: ERDOSTEINE
     Indication: Chronic obstructive pulmonary disease
     Dosage: 300 MG, BID
     Route: 048
     Dates: start: 20220307
  4. DOXOFYLLINE [Concomitant]
     Active Substance: DOXOFYLLINE
     Indication: Chronic obstructive pulmonary disease
     Dosage: 400 MG, BID
     Route: 048
     Dates: start: 20160720
  5. OMEPRAZOLE [Concomitant]
     Active Substance: OMEPRAZOLE
     Indication: Peptic ulcer
     Dosage: 20 MG, QD
     Route: 048
     Dates: start: 20160727

REACTIONS (1)
  - Pneumonia [Fatal]

NARRATIVE: CASE EVENT DATE: 20220616
